FAERS Safety Report 5331941-9 (Version None)
Quarter: 2007Q2

REPORT INFORMATION
  Report Type: 
  Country: None (occurrence: None)
  Receive Date: 20070518
  Receipt Date: 20070514
  Transmission Date: 20071010
  Serious: Yes (Death, Hospitalization)
  Sender: FDA-Public Use
  Company Number: 163-21880-06111192

PATIENT
  Age: 79 Year
  Sex: Male

DRUGS (2)
  1. REVLIMID [Suspect]
     Indication: MULTIPLE MYELOMA
     Dosage: 5MG W/2 10 MG FOR A TOTAL OF 25MG, DAILY FOR 21 DAYS, ORAL
     Route: 048
     Dates: start: 20060801, end: 20060101
  2. REVLIMID [Suspect]

REACTIONS (2)
  - CARDIAC DISORDER [None]
  - SEPSIS [None]
